FAERS Safety Report 8776094 (Version 2)
Quarter: 2012Q4

REPORT INFORMATION
  Report Type: 
  Country: US (occurrence: US)
  Receive Date: 20120910
  Receipt Date: 20121207
  Transmission Date: 20130627
  Serious: Yes (Other)
  Sender: FDA-Public Use
  Company Number: US-VIIV HEALTHCARE LIMITED-A0991465A

PATIENT
  Sex: Male

DRUGS (16)
  1. EPZICOM [Suspect]
     Indication: HIV INFECTION
     Dosage: 1TAB Per day
     Route: 048
     Dates: start: 2009
  2. DYE [Suspect]
     Indication: CARDIAC FAILURE
     Route: 065
  3. TOPROL XL [Concomitant]
  4. HYZAAR [Concomitant]
  5. PLAVIX [Concomitant]
  6. PRILOSEC [Concomitant]
  7. LIPITOR [Concomitant]
  8. ZETIA [Concomitant]
  9. VIRAMUNE [Concomitant]
  10. TESTOSTERONE INJECTION [Concomitant]
  11. SYMBICORT [Concomitant]
  12. ALBUTEROL INHALER [Concomitant]
  13. UROXATRAL [Concomitant]
  14. FINASTERIDE [Concomitant]
  15. ASPIRIN [Concomitant]
  16. SPIRIVA [Concomitant]

REACTIONS (2)
  - Renal failure [Not Recovered/Not Resolved]
  - Renal impairment [Not Recovered/Not Resolved]
